FAERS Safety Report 25214523 (Version 3)
Quarter: 2025Q2

REPORT INFORMATION
  Report Type: Spontaneous
  Country: FR (occurrence: FR)
  Receive Date: 20250418
  Receipt Date: 20250516
  Transmission Date: 20250717
  Serious: Yes (Hospitalization, Other)
  Sender: SANOFI AVENTIS
  Company Number: FR-SANOFI-02458087

PATIENT
  Age: 60 Year
  Sex: Female
  Weight: 60.4 kg

DRUGS (9)
  1. THYMOGLOBULINE [Suspect]
     Active Substance: LAPINE T-LYMPHOCYTE IMMUNE GLOBULIN
     Indication: Renal transplant
     Dosage: 100 MG, QD (OR 1.25 MG/KG)
     Route: 042
     Dates: start: 20250301, end: 20250305
  2. INSULIN NOS [Concomitant]
     Active Substance: INSULIN NOS
  3. PANTOPRAZOLE [Concomitant]
     Active Substance: PANTOPRAZOLE
  4. APIXABAN [Concomitant]
     Active Substance: APIXABAN
  5. VALGANCICLOVIR [Concomitant]
     Active Substance: VALGANCICLOVIR
  6. BISOPROLOL [Concomitant]
     Active Substance: BISOPROLOL
  7. KARDEGIC [Concomitant]
     Active Substance: ASPIRIN DL-LYSINE
  8. BACTRIM [Concomitant]
     Active Substance: SULFAMETHOXAZOLE\TRIMETHOPRIM
  9. PROGRAF [Concomitant]
     Active Substance: TACROLIMUS

REACTIONS (4)
  - Transplant rejection [Unknown]
  - Lymphocyte count increased [Not Recovered/Not Resolved]
  - Rebound effect [Not Recovered/Not Resolved]
  - Drug ineffective [Not Recovered/Not Resolved]

NARRATIVE: CASE EVENT DATE: 20250301
